FAERS Safety Report 14509515 (Version 1)
Quarter: 2018Q1

REPORT INFORMATION
  Report Type: Spontaneous
  Country: US (occurrence: US)
  Receive Date: 20180209
  Receipt Date: 20180209
  Transmission Date: 20180509
  Serious: Yes (Hospitalization)
  Sender: FDA-Public Use
  Company Number: US-TEVA-2018-US-855645

PATIENT
  Age: 77 Year
  Sex: Male
  Weight: 106 kg

DRUGS (6)
  1. SYNRIBO [Suspect]
     Active Substance: OMACETAXINE MEPESUCCINATE
     Indication: CHRONIC MYELOID LEUKAEMIA
     Dosage: 2.88MG (0.82 ML)
     Route: 058
     Dates: start: 20180124
  2. HYDROCODONE-ACETAMINOPHEN [Concomitant]
     Active Substance: ACETAMINOPHEN\HYDROCODONE
  3. TRAMADOL. [Concomitant]
     Active Substance: TRAMADOL
  4. ATORVASTATIN [Concomitant]
     Active Substance: ATORVASTATIN
  5. NOVOLIN [Concomitant]
     Active Substance: INSULIN HUMAN
  6. GABAPENTIN. [Concomitant]
     Active Substance: GABAPENTIN

REACTIONS (1)
  - Mass [Not Recovered/Not Resolved]

NARRATIVE: CASE EVENT DATE: 20180127
